FAERS Safety Report 6185115-2 (Version None)
Quarter: 2009Q2

REPORT INFORMATION
  Report Type: 
  Country: None (occurrence: None)
  Receive Date: 20090511
  Receipt Date: 20090430
  Transmission Date: 20091009
  Serious: Yes (Other)
  Sender: FDA-Public Use
  Company Number: BR-BAYER-200916011LA

PATIENT
  Age: 53 Year
  Sex: Female

DRUGS (5)
  1. BETAFERON [Suspect]
     Indication: MULTIPLE SCLEROSIS
     Route: 058
     Dates: start: 20090304, end: 20090312
  2. UNKNOWN DRUG [Concomitant]
     Route: 065
     Dates: start: 20090312, end: 20090312
  3. DONAREN [Concomitant]
     Indication: MULTIPLE SCLEROSIS
     Dosage: TOTAL DAILY DOSE: 100 MG  UNIT DOSE: 100 MG
     Route: 048
     Dates: start: 20080701
  4. CITALOPRAM HYDROBROMIDE [Concomitant]
     Indication: DEPRESSION
     Dosage: TOTAL DAILY DOSE: 10 MG  UNIT DOSE: 20 MG
     Route: 048
     Dates: start: 20080901
  5. RIVOTRIL [Concomitant]
     Indication: ANXIETY
     Dosage: TOTAL DAILY DOSE: 2 MG  UNIT DOSE: 2 MG
     Route: 048
     Dates: start: 19990101

REACTIONS (10)
  - DYSPNOEA [None]
  - FEAR OF DEATH [None]
  - FEELING ABNORMAL [None]
  - FEELING COLD [None]
  - FEELING HOT [None]
  - GASTROINTESTINAL DISORDER [None]
  - INSOMNIA [None]
  - MALAISE [None]
  - MUSCLE RIGIDITY [None]
  - TREMOR [None]
